FAERS Safety Report 20425623 (Version 1)
Quarter: 2022Q1

REPORT INFORMATION
  Report Type: Spontaneous
  Country: FR (occurrence: FR)
  Receive Date: 20220204
  Receipt Date: 20220204
  Transmission Date: 20220423
  Serious: No
  Sender: FDA-Public Use
  Company Number: FR-EXELIXIS-CABO-21039414

PATIENT
  Sex: Male

DRUGS (2)
  1. CABOMETYX [Suspect]
     Active Substance: CABOZANTINIB S-MALATE
     Indication: Renal cancer
     Dosage: 40 MG (WITH HIS BREAKFAST)
  2. PREDNISOLONE SODIUM METAZOATE [Suspect]
     Active Substance: PREDNISOLONE SODIUM METAZOATE
     Indication: Neoplasm malignant
     Dosage: 20 MG

REACTIONS (4)
  - Inflammation [Unknown]
  - Dizziness [Unknown]
  - Labelled drug-food interaction medication error [Unknown]
  - Malignant neoplasm progression [Unknown]
